FAERS Safety Report 7625538-5 (Version None)
Quarter: 2011Q3

REPORT INFORMATION
  Report Type: 
  Country: None (occurrence: None)
  Receive Date: 20110713
  Receipt Date: 20110628
  Transmission Date: 20111222
  Serious: Yes (Other)
  Sender: FDA-Public Use
  Company Number: 2011MA008368

PATIENT
  Age: 74 Year
  Sex: Female

DRUGS (1)
  1. PRAMIPEXOLE DIHYDROCHLORIDE TABLETS 1MG (APMPL) (PRAMIPEXOLE) [Suspect]

REACTIONS (2)
  - PATHOLOGICAL GAMBLING [None]
  - PERSONALITY CHANGE [None]
